FAERS Safety Report 5805284-0 (Version None)
Quarter: 2008Q3

REPORT INFORMATION
  Report Type: 
  Country: None (occurrence: None)
  Receive Date: 20080709
  Receipt Date: 20080703
  Transmission Date: 20090109
  Serious: Yes (Other)
  Sender: FDA-Public Use
  Company Number: US-ALLERGAN-0808161US

PATIENT
  Sex: Male

DRUGS (3)
  1. BOTOX [Suspect]
     Indication: DRUG USE FOR UNKNOWN INDICATION
     Dosage: UNK, SINGLE
     Route: 030
     Dates: start: 20080601, end: 20080601
  2. KEPPRA [Interacting]
     Indication: CONVULSION
  3. CLONAZEPAM [Interacting]
     Indication: CONVULSION

REACTIONS (3)
  - CONVULSION [None]
  - DRUG INTERACTION [None]
  - GAIT DISTURBANCE [None]
